FAERS Safety Report 5792669-4 (Version None)
Quarter: 2008Q2

REPORT INFORMATION
  Report Type: 
  Country: None (occurrence: None)
  Receive Date: 20080624
  Receipt Date: 20080620
  Transmission Date: 20081010
  Serious: Yes (Death, Hospitalization)
  Sender: FDA-Public Use
  Company Number: 2008SP012136

PATIENT
  Age: 74 Year
  Sex: Male

DRUGS (2)
  1. TEMODAL [Suspect]
     Indication: GLIOBLASTOMA
     Dosage: 200 MG/M2;QD;PO
     Route: 048
     Dates: start: 20080524, end: 20080529
  2. NEURONTIN [Concomitant]

REACTIONS (2)
  - BONE MARROW FAILURE [None]
  - LUNG DISORDER [None]
